FAERS Safety Report 24845064 (Version 1)
Quarter: 2025Q1

REPORT INFORMATION
  Report Type: Spontaneous
  Country: US (occurrence: None)
  Receive Date: 20250114
  Receipt Date: 20250114
  Transmission Date: 20250409
  Serious: Yes (Hospitalization)
  Sender: FDA-CTU
  Company Number: None

PATIENT
  Age: 54 Year
  Sex: Female

DRUGS (10)
  1. TACROLIMUS [Suspect]
     Active Substance: TACROLIMUS
     Indication: Lung transplant
     Dosage: FREQUENCY : TWICE A DAY;?
     Route: 048
     Dates: start: 20240325
  2. Aspirin 81 mg tabs [Concomitant]
  3. Atovaquone 750 mg / 5 ml susp [Concomitant]
  4. Calcium citrate + D3 tabs [Concomitant]
  5. Azithromycin 250 mg tabs [Concomitant]
  6. Melatonin 3 mg tabs [Concomitant]
  7. Metocloperaminde 10 mg tabs [Concomitant]
  8. prednisone 5 mg tabs [Concomitant]
  9. Mirtazapine 15 mg tabs [Concomitant]
  10. Simethicone 80 mg chewable [Concomitant]

REACTIONS (2)
  - Large intestine infection [None]
  - Pneumonia [None]

NARRATIVE: CASE EVENT DATE: 20241226
